FAERS Safety Report 9534980 (Version 1)
Quarter: 2013Q3

REPORT INFORMATION
  Report Type: Spontaneous
  Country: NL (occurrence: NL)
  Receive Date: 20130918
  Receipt Date: 20130918
  Transmission Date: 20140515
  Serious: Yes (Life-Threatening, Hospitalization)
  Sender: FDA-Public Use
  Company Number: NL-PFIZER INC-2013264607

PATIENT
  Age: 60 Year
  Sex: Female

DRUGS (3)
  1. SULFASALAZINE [Suspect]
     Indication: ANKYLOSING SPONDYLITIS
     Dosage: 1000 MG, 2X/DAY
     Dates: start: 20130724, end: 20130830
  2. CELEBREX [Concomitant]
     Dosage: 100 MG, 2X/DAY
     Dates: start: 20130702
  3. HYDROCHLOROTHIAZIDE [Concomitant]
     Dosage: 25 MG, 1X/DAY
     Dates: start: 20090215

REACTIONS (1)
  - Neutropenic sepsis [Recovered/Resolved with Sequelae]
